FAERS Safety Report 5879314-4 (Version None)
Quarter: 2008Q3

REPORT INFORMATION
  Report Type: 
  Country: None (occurrence: None)
  Receive Date: 20080912
  Receipt Date: 20080910
  Transmission Date: 20090109
  Serious: Yes (Hospitalization)
  Sender: FDA-Public Use
  Company Number: US-BAYER-200812379BCC

PATIENT
  Sex: Female

DRUGS (3)
  1. ASPIRIN [Suspect]
     Indication: ATRIAL FIBRILLATION
     Route: 048
  2. PLAVIX [Suspect]
     Indication: CARDIAC DISORDER
     Route: 048
  3. COUMADIN [Suspect]
     Indication: ATRIAL FIBRILLATION
     Route: 048

REACTIONS (1)
  - RECTAL HAEMORRHAGE [None]
